FAERS Safety Report 20471170 (Version 1)
Quarter: 2022Q1

REPORT INFORMATION
  Report Type: Spontaneous
  Country: GB (occurrence: GB)
  Receive Date: 20220214
  Receipt Date: 20220214
  Transmission Date: 20220424
  Serious: Yes (Other)
  Sender: FDA-Public Use
  Company Number: GB-PFIZER INC-202101817849

PATIENT
  Age: 68 Year
  Sex: Female

DRUGS (1)
  1. GENOTROPIN [Suspect]
     Active Substance: SOMATROPIN
     Indication: Growth hormone deficiency
     Dosage: 0.2 MG, MON/WED/FRI AS DIRECTED
     Route: 058

REACTIONS (4)
  - Dementia [Unknown]
  - Treatment noncompliance [Unknown]
  - Poor quality product administered [Unknown]
  - Product storage error [Unknown]
